FAERS Safety Report 7810383-8 (Version None)
Quarter: 2011Q4

REPORT INFORMATION
  Report Type: 
  Country: None (occurrence: None)
  Receive Date: 20111012
  Receipt Date: 20111003
  Transmission Date: 20120403
  Serious: Yes (Hospitalization, Other)
  Sender: FDA-Public Use
  Company Number: BR-ASTRAZENECA-2011SE59305

PATIENT
  Age: 75 Year
  Sex: Female
  Weight: 74 kg

DRUGS (5)
  1. ATACAND HCT [Suspect]
     Indication: HYPERTENSION
     Dosage: 8/12.5 MG ONCE DAILY
     Route: 048
     Dates: start: 20060101, end: 20110401
  2. SERETIDE [Concomitant]
     Indication: CHRONIC OBSTRUCTIVE PULMONARY DISEASE
     Route: 048
     Dates: start: 20060101
  3. NEXIUM [Suspect]
     Indication: GASTROOESOPHAGEAL REFLUX DISEASE
     Route: 048
     Dates: start: 20060101
  4. ATACAND [Suspect]
     Indication: HYPERTENSION
     Route: 048
     Dates: start: 20110401
  5. ASA PEDIATRIC [Concomitant]
     Route: 048
     Dates: start: 20060101

REACTIONS (3)
  - RENAL CANCER [None]
  - DIABETES MELLITUS [None]
  - BLOOD URIC ACID INCREASED [None]
